FAERS Safety Report 8270463-2 (Version None)
Quarter: 2012Q2

REPORT INFORMATION
  Report Type: 
  Country: None (occurrence: None)
  Receive Date: 20120410
  Receipt Date: 20120404
  Transmission Date: 20120825
  Serious: Yes (Hospitalization)
  Sender: FDA-Public Use
  Company Number: PHHO2011US03792

PATIENT
  Sex: Female
  Weight: 75 kg

DRUGS (5)
  1. CORTICOSTEROIDS [Suspect]
     Indication: RENAL TRANSPLANT
     Route: 048
  2. TACROLIMUS [Suspect]
     Route: 048
  3. SIMULECT [Suspect]
     Indication: RENAL TRANSPLANT
  4. CERTICAN [Suspect]
     Dosage: 1.5 MG, BID
     Route: 048
     Dates: start: 20110127
  5. CERTICAN [Suspect]
     Indication: RENAL TRANSPLANT
     Dosage: 0.75 MG, BID
     Route: 048
     Dates: start: 20110126, end: 20110127

REACTIONS (5)
  - LYMPHOCELE [None]
  - PAIN IN EXTREMITY [None]
  - PERINEPHRIC COLLECTION [None]
  - OEDEMA PERIPHERAL [None]
  - HYDRONEPHROSIS [None]
